FAERS Safety Report 22100732 (Version 1)
Quarter: 2023Q1

REPORT INFORMATION
  Report Type: Report from Study
  Country: US (occurrence: US)
  Receive Date: 20230316
  Receipt Date: 20230316
  Transmission Date: 20230417
  Serious: No
  Sender: FDA-Public Use
  Company Number: US-BRISTOL-MYERS SQUIBB COMPANY-2023-037254

PATIENT
  Age: 38 Year
  Sex: Female

DRUGS (2)
  1. ZEPOSIA [Suspect]
     Active Substance: OZANIMOD HYDROCHLORIDE
     Indication: Colitis ulcerative
     Route: 048
     Dates: start: 202212
  2. FLUCELVAX QUAD [Concomitant]
     Indication: Product used for unknown indication
     Dosage: THERAPY DATES WERE NOT SPECIFIED
     Dates: start: 2022, end: 2023

REACTIONS (1)
  - Maternal exposure during pregnancy [Unknown]
